FAERS Safety Report 21490875 (Version 1)
Quarter: 2022Q4

REPORT INFORMATION
  Report Type: Spontaneous
  Country: DE (occurrence: DE)
  Receive Date: 20221021
  Receipt Date: 20221021
  Transmission Date: 20230113
  Serious: Yes (Other)
  Sender: FDA-Public Use
  Company Number: DE-ALKEM LABORATORIES LIMITED-DE-ALKEM-2022-10607

PATIENT
  Sex: Female
  Weight: 63 kg

DRUGS (2)
  1. FINGOLIMOD [Suspect]
     Active Substance: FINGOLIMOD
     Indication: Multiple sclerosis
     Dosage: 0.5 MILLIGRAM, QD
     Route: 048
     Dates: start: 20181204
  2. BOTULINUM TOXIN TYPE A [Concomitant]
     Active Substance: BOTULINUM TOXIN TYPE A
     Indication: Torticollis
     Dosage: UNK
     Route: 065
     Dates: start: 20080101, end: 201907

REACTIONS (3)
  - Lymphocyte count decreased [Not Recovered/Not Resolved]
  - Haemangioma [Unknown]
  - Renal cyst [Unknown]

NARRATIVE: CASE EVENT DATE: 20190110
